FAERS Safety Report 24823149 (Version 1)
Quarter: 2025Q1

REPORT INFORMATION
  Report Type: Spontaneous
  Country: JP (occurrence: None)
  Receive Date: 20250109
  Receipt Date: 20250109
  Transmission Date: 20250408
  Serious: Yes (Hospitalization)
  Sender: ORION
  Company Number: JP-Orion Corporation ORION PHARMA-ENT 2025-0001

PATIENT
  Age: 73 Year
  Sex: Male

DRUGS (16)
  1. COMTAN [Suspect]
     Active Substance: ENTACAPONE
     Indication: Parkinson^s disease
  2. HARUROPI TAPES [Concomitant]
     Indication: Parkinson^s disease
  3. CARBIDOPA\LEVODOPA [Concomitant]
     Active Substance: CARBIDOPA\LEVODOPA
     Indication: Parkinson^s disease
     Dosage: STRENGTH: 100 MG
  4. PRAMIPEXOLE [Concomitant]
     Active Substance: PRAMIPEXOLE
     Indication: Parkinson^s disease
  5. MAGNESIUM OXIDE [Concomitant]
     Active Substance: MAGNESIUM OXIDE
  6. REBAMIPIDE [Concomitant]
     Active Substance: REBAMIPIDE
  7. MOSAPRIDE [Concomitant]
     Active Substance: MOSAPRIDE
  8. DROXIDOPA [Concomitant]
     Active Substance: DROXIDOPA
  9. ALFACALCIDOL [Concomitant]
     Active Substance: ALFACALCIDOL
  10. CLOPIDOGREL [Concomitant]
     Active Substance: CLOPIDOGREL BISULFATE
  11. SODIUM FERROUS CITRATE [Concomitant]
     Active Substance: SODIUM FERROUS CITRATE
  12. VIBEGRON [Concomitant]
     Active Substance: VIBEGRON
  13. MIDODRINE [Concomitant]
     Active Substance: MIDODRINE
  14. PREGABALIN [Concomitant]
     Active Substance: PREGABALIN
  15. RIVASTIGMINE [Concomitant]
     Active Substance: RIVASTIGMINE
  16. DOMPERIDONE [Concomitant]
     Active Substance: DOMPERIDONE

REACTIONS (1)
  - Hospitalisation [Recovered/Resolved]

NARRATIVE: CASE EVENT DATE: 20241203
